FAERS Safety Report 5123072-8 (Version None)
Quarter: 2006Q4

REPORT INFORMATION
  Report Type: 
  Country: None (occurrence: None)
  Receive Date: 20061004
  Receipt Date: 20061004
  Transmission Date: 20070319
  Serious: No
  Sender: FDA-Public Use
  Company Number: None

PATIENT
  Age: 50 Year
  Sex: Male
  Weight: 114 kg

DRUGS (2)
  1. GLYBURIDE [Suspect]
     Indication: HYPERGLYCAEMIA
     Dosage: 5 MG PO BID
     Route: 048
     Dates: start: 20060404, end: 20060418
  2. GLYBURIDE [Suspect]
     Indication: DIABETES MELLITUS
     Dosage: 5 MG Q AM/PM
     Dates: start: 20060404, end: 20060419

REACTIONS (3)
  - PRURITUS [None]
  - RASH ERYTHEMATOUS [None]
  - RASH MACULO-PAPULAR [None]
